FAERS Safety Report 12618177 (Version 1)
Quarter: 2016Q3

REPORT INFORMATION
  Report Type: Spontaneous
  Country: US (occurrence: None)
  Receive Date: 20160802
  Receipt Date: 20160802
  Transmission Date: 20161109
  Serious: Yes (Life-Threatening, Hospitalization)
  Sender: FDA-Public Use
  Company Number: None

PATIENT
  Age: 65 Year
  Sex: Female
  Weight: 63.5 kg

DRUGS (5)
  1. LEVOFLOXACIN DR. REDDY PHARMACEUTICALS [Suspect]
     Active Substance: LEVOFLOXACIN
     Indication: UPPER RESPIRATORY TRACT INFECTION
     Route: 048
     Dates: start: 20160211, end: 20160324
  2. SUMATRIPTAN. [Concomitant]
     Active Substance: SUMATRIPTAN
  3. MTX [Concomitant]
     Active Substance: METHOTREXATE SODIUM
  4. LEVOFLOXACIN DR. REDDY PHARMACEUTICALS [Suspect]
     Active Substance: LEVOFLOXACIN
     Indication: PNEUMONIA
     Route: 048
     Dates: start: 20160211, end: 20160324
  5. SULINDAC. [Concomitant]
     Active Substance: SULINDAC

REACTIONS (4)
  - Fatigue [None]
  - Paraesthesia [None]
  - Asthenia [None]
  - Nervous system disorder [None]

NARRATIVE: CASE EVENT DATE: 20160429
